FAERS Safety Report 10365997 (Version 1)
Quarter: 2014Q3

REPORT INFORMATION
  Report Type: Spontaneous
  Country: US (occurrence: US)
  Receive Date: 20140806
  Receipt Date: 20140806
  Transmission Date: 20150326
  Serious: Yes (Hospitalization)
  Sender: FDA-Public Use
  Company Number: US-GLAXOSMITHKLINE-A1083179A

PATIENT
  Age: 54 Year
  Sex: Female

DRUGS (11)
  1. DILTIAZEM HYDROCHLORIDE EXTENDED RELEASE [Concomitant]
     Active Substance: DILTIAZEM HYDROCHLORIDE
  2. POTASSIUM [Concomitant]
     Active Substance: POTASSIUM
  3. FLOVENT [Suspect]
     Active Substance: FLUTICASONE PROPIONATE
     Indication: ASTHMA
     Dosage: 2PUFF TWICE PER DAY
     Route: 055
  4. ALLEGRA [Concomitant]
     Active Substance: FEXOFENADINE HYDROCHLORIDE
  5. ADVAIR HFA [Suspect]
     Active Substance: FLUTICASONE PROPIONATE\SALMETEROL XINAFOATE
     Indication: PULMONARY FUNCTION TEST
     Dosage: 1PUFF TWICE PER DAY
     Route: 055
     Dates: start: 20140619
  6. LASIX [Concomitant]
     Active Substance: FUROSEMIDE
  7. VENTOLIN [Suspect]
     Active Substance: ALBUTEROL SULFATE
     Indication: ASTHMA
     Dosage: 2PUFF AS REQUIRED
     Route: 055
  8. PERCOCET [Concomitant]
     Active Substance: ACETAMINOPHEN\OXYCODONE HYDROCHLORIDE
  9. OXYGEN. [Concomitant]
     Active Substance: OXYGEN
  10. FLONASE [Suspect]
     Active Substance: FLUTICASONE PROPIONATE
     Indication: RHINITIS ALLERGIC
     Dosage: 2SPR PER DAY
     Route: 045
  11. CLONIDINE. [Concomitant]
     Active Substance: CLONIDINE

REACTIONS (3)
  - Pneumonectomy [Unknown]
  - Lung neoplasm malignant [Unknown]
  - Pulmonary mass [Unknown]

NARRATIVE: CASE EVENT DATE: 201403
